FAERS Safety Report 7430625-0 (Version None)
Quarter: 2011Q2

REPORT INFORMATION
  Report Type: 
  Country: None (occurrence: None)
  Receive Date: 20110421
  Receipt Date: 20110110
  Transmission Date: 20111010
  Serious: Yes (Hospitalization)
  Sender: FDA-Public Use
  Company Number: US-ASTRAZENECA-2011SE01597

PATIENT

DRUGS (7)
  1. BELOC- ZOK [Suspect]
     Route: 048
     Dates: start: 20100906, end: 20101118
  2. TRITACE [Suspect]
     Route: 048
     Dates: start: 20100902
  3. APIXABAN [Suspect]
     Indication: EMBOLISM ARTERIAL
     Route: 048
     Dates: start: 20100903
  4. ENOXAPARIN SODIUM [Suspect]
     Indication: EMBOLISM ARTERIAL
     Route: 058
     Dates: start: 20100903, end: 20100912
  5. WARFARIN SODIUM [Suspect]
     Indication: EMBOLISM ARTERIAL
     Route: 048
     Dates: start: 20100904
  6. PLACEBO [Suspect]
     Indication: EMBOLISM ARTERIAL
     Dates: start: 20100904
  7. ATORVASTATIN [Concomitant]
     Dates: start: 20100902

REACTIONS (1)
  - BRADYCARDIA [None]
